FAERS Safety Report 20044879 (Version 3)
Quarter: 2022Q4

REPORT INFORMATION
  Report Type: Spontaneous
  Country: HR (occurrence: HR)
  Receive Date: 20211108
  Receipt Date: 20221117
  Transmission Date: 20230113
  Serious: Yes (Other)
  Sender: FDA-Public Use
  Company Number: HR-GILEAD-2021-0555285

PATIENT
  Age: 63 Year
  Sex: Female

DRUGS (9)
  1. VEKLURY [Interacting]
     Active Substance: REMDESIVIR
     Indication: COVID-19 pneumonia
     Dosage: UNK
     Route: 065
     Dates: start: 202104, end: 20210503
  2. ATORVASTATIN [Interacting]
     Active Substance: ATORVASTATIN
     Indication: Myocardial infarction
     Dosage: 80 MG (HIGH DOSES)
     Route: 065
     Dates: start: 201504, end: 20210531
  3. EZETIMIBE [Interacting]
     Active Substance: EZETIMIBE
     Indication: Myocardial infarction
     Dosage: 10 MG, QD
     Route: 065
     Dates: start: 201504, end: 20210513
  4. TACROLIMUS [Interacting]
     Active Substance: TACROLIMUS
     Indication: Immunosuppression
     Dosage: UNK
     Route: 065
     Dates: start: 200101, end: 202104
  5. CEFTRIAXONE [Concomitant]
     Active Substance: CEFTRIAXONE
     Indication: COVID-19
     Dosage: UNK
     Dates: start: 202104
  6. CEFTRIAXONE [Concomitant]
     Active Substance: CEFTRIAXONE
     Indication: Pneumonia
  7. DEXAMETHASONE [Concomitant]
     Active Substance: DEXAMETHASONE
     Indication: COVID-19
     Dosage: UNK
     Dates: start: 202104
  8. DEXAMETHASONE [Concomitant]
     Active Substance: DEXAMETHASONE
     Indication: Pneumonia
  9. MYCOPHENOLIC ACID [Concomitant]
     Active Substance: MYCOPHENOLIC ACID
     Dosage: UNK
     Dates: start: 200101, end: 202104

REACTIONS (3)
  - Myopathy toxic [Recovering/Resolving]
  - Liver injury [Recovering/Resolving]
  - Drug interaction [Recovering/Resolving]

NARRATIVE: CASE EVENT DATE: 20210101
